FAERS Safety Report 9734530 (Version 4)
Quarter: 2014Q2

REPORT INFORMATION
  Report Type: Spontaneous
  Country: US (occurrence: US)
  Receive Date: 20131206
  Receipt Date: 20140404
  Transmission Date: 20141212
  Serious: Yes (Hospitalization)
  Sender: FDA-Public Use
  Company Number: US-BIOGENIDEC-2013BI116346

PATIENT
  Age: 61 Year
  Sex: Female

DRUGS (19)
  1. TECFIDERA [Suspect]
     Indication: MULTIPLE SCLEROSIS
     Route: 048
     Dates: start: 20130913
  2. BENTYL [Concomitant]
     Route: 048
  3. CRANBERRY [Concomitant]
  4. ECOTRIN [Concomitant]
     Route: 048
  5. VITAMIN C [Concomitant]
  6. HYDROCODONE [Concomitant]
  7. DIAZEPAM [Concomitant]
  8. CYCLOBENZAPRINE [Concomitant]
  9. AMOX-TR-POTASSIUM CLAVULANATE [Concomitant]
  10. SYNTHROID [Concomitant]
     Route: 048
  11. SIMVASTATIN [Concomitant]
     Route: 048
  12. LISINOPRIL [Concomitant]
     Route: 048
  13. METHENAMINE HIPPURATE [Concomitant]
  14. ESTRACE [Concomitant]
  15. NORCO 5/325 [Concomitant]
     Route: 048
  16. FLEXERIL [Concomitant]
     Indication: BACK PAIN
     Route: 048
  17. GABAPENTIN [Concomitant]
     Route: 048
  18. ZOLOFT [Concomitant]
     Route: 048
  19. ACETAMINOPHEN [Concomitant]
     Route: 048

REACTIONS (11)
  - Renal failure acute [Unknown]
  - Vomiting [Recovered/Resolved]
  - Nausea [Recovered/Resolved]
  - Dehydration [Recovered/Resolved]
  - Hypovolaemia [Unknown]
  - Hypotension [Unknown]
  - Polycythaemia [Unknown]
  - Hypokalaemia [Unknown]
  - Metabolic acidosis [Unknown]
  - Cystitis [Not Recovered/Not Resolved]
  - Constipation [Recovered/Resolved]
